FAERS Safety Report 5613122-4 (Version None)
Quarter: 2008Q1

REPORT INFORMATION
  Report Type: 
  Country: None (occurrence: None)
  Receive Date: 20080204
  Receipt Date: 20080130
  Transmission Date: 20080703
  Serious: Yes (Other)
  Sender: FDA-Public Use
  Company Number: US-MERCK-0801USA06036

PATIENT
  Age: 77 Year
  Sex: Female

DRUGS (5)
  1. ZETIA [Suspect]
     Indication: BLOOD CHOLESTEROL INCREASED
     Route: 048
     Dates: start: 20050101
  2. COREG [Concomitant]
     Route: 065
  3. PRILOSEC [Concomitant]
     Route: 048
  4. PLAVIX [Concomitant]
     Route: 065
  5. INSULIN [Concomitant]
     Route: 065

REACTIONS (2)
  - GALLBLADDER DISORDER [None]
  - PANCREATITIS [None]
